FAERS Safety Report 4340544-4 (Version None)
Quarter: 2004Q2

REPORT INFORMATION
  Report Type: 
  Country: None (occurrence: None)
  Receive Date: 20040414
  Receipt Date: 20040401
  Transmission Date: 20050107
  Serious: Yes (Hospitalization, Other)
  Sender: FDA-Public Use
  Company Number: 2004018422

PATIENT
  Age: 32 Year
  Sex: Male

DRUGS (1)
  1. GLADEM (SERTRALINE) [Suspect]
     Indication: DEPRESSION
     Dates: start: 19990301

REACTIONS (12)
  - ABNORMAL BEHAVIOUR [None]
  - ANOREXIA [None]
  - BIPOLAR DISORDER [None]
  - DEREALISATION [None]
  - DRUG DEPENDENCE [None]
  - EUPHORIC MOOD [None]
  - HALLUCINATION [None]
  - INSOMNIA [None]
  - MANIA [None]
  - PSYCHOMOTOR HYPERACTIVITY [None]
  - PSYCHOTIC DISORDER [None]
  - SEXUAL ACTIVITY INCREASED [None]
